FAERS Safety Report 21516527 (Version 1)
Quarter: 2022Q4

REPORT INFORMATION
  Report Type: Spontaneous
  Country: BR (occurrence: BR)
  Receive Date: 20221027
  Receipt Date: 20221027
  Transmission Date: 20230113
  Serious: Yes (Other)
  Sender: FDA-Public Use
  Company Number: BR-002147023-NVSC2022BR237024

PATIENT

DRUGS (1)
  1. RUXOLITINIB [Suspect]
     Active Substance: RUXOLITINIB
     Indication: Product used for unknown indication
     Dosage: UNK
     Route: 065
     Dates: start: 202101

REACTIONS (4)
  - Anaemia [Unknown]
  - Spleen disorder [Unknown]
  - Thrombocytopenia [Unknown]
  - Encephalitis viral [Unknown]

NARRATIVE: CASE EVENT DATE: 20210701
